FAERS Safety Report 24279918 (Version 1)
Quarter: 2024Q3

REPORT INFORMATION
  Report Type: Other
  Country: FR (occurrence: FR)
  Receive Date: 20240904
  Receipt Date: 20240904
  Transmission Date: 20241017
  Serious: Yes (Other)
  Sender: ZYDUS PHARM
  Company Number: None

PATIENT

DRUGS (2)
  1. ACETAMINOPHEN [Suspect]
     Active Substance: ACETAMINOPHEN
     Indication: Pyrexia
     Dosage: UNK
     Route: 048
     Dates: start: 20240708, end: 20240712
  2. ANTIPYRINE\LIDOCAINE [Suspect]
     Active Substance: ANTIPYRINE\LIDOCAINE
     Indication: Ear pain
     Dosage: UNK
     Route: 001
     Dates: start: 20240708, end: 20240712

REACTIONS (1)
  - Fixed eruption [Not Recovered/Not Resolved]

NARRATIVE: CASE EVENT DATE: 20240708
